FAERS Safety Report 11558535 (Version 1)
Quarter: 2015Q3

REPORT INFORMATION
  Report Type: Spontaneous
  Country: US (occurrence: None)
  Receive Date: 20150925
  Receipt Date: 20150925
  Transmission Date: 20151125
  Serious: No
  Sender: FDA-Public Use
  Company Number: None

PATIENT
  Age: 62 Year
  Sex: Male
  Weight: 65.77 kg

DRUGS (1)
  1. PROLIA [Suspect]
     Active Substance: DENOSUMAB
     Indication: OSTEOPOROSIS
     Route: 058

REACTIONS (5)
  - Cyst [None]
  - Blood parathyroid hormone decreased [None]
  - Arthralgia [None]
  - Pain in extremity [None]
  - Blood calcium decreased [None]

NARRATIVE: CASE EVENT DATE: 20150616
